FAERS Safety Report 4987875-2 (Version None)
Quarter: 2006Q2

REPORT INFORMATION
  Report Type: 
  Country: None (occurrence: None)
  Receive Date: 20060424
  Receipt Date: 20060404
  Transmission Date: 20061013
  Serious: Yes (Other)
  Sender: FDA-Public Use
  Company Number: SE200603001756

PATIENT
  Sex: Female

DRUGS (3)
  1. HUMALOG PEN [Suspect]
     Indication: DIABETES MELLITUS
     Dosage: 12 U, DAILY (1/D), SUBCUTANEOUS
     Route: 058
  2. HUMALOG [Suspect]
     Dosage: SUBCUTANEOUS
     Route: 058
  3. HUMALOG PEN [Concomitant]

REACTIONS (4)
  - BLOOD GLUCOSE INCREASED [None]
  - PHARMACEUTICAL PRODUCT COMPLAINT [None]
  - URINE KETONE BODY PRESENT [None]
  - WRONG DRUG ADMINISTERED [None]
